FAERS Safety Report 13640482 (Version 2)
Quarter: 2017Q2

REPORT INFORMATION
  Report Type: Spontaneous
  Country: US (occurrence: US)
  Receive Date: 20170611
  Receipt Date: 20170612
  Transmission Date: 20170830
  Serious: Yes (Other)
  Sender: FDA-Public Use
  Company Number: US-JNJFOC-20170529152

PATIENT
  Age: 57 Year
  Sex: Female
  Weight: 58.97 kg

DRUGS (1)
  1. NEOSPORIN PLUS PAIN RELIEF FIRST AID ANTIBIOTIC/PAIN RELIEVING [Suspect]
     Active Substance: NEOMYCIN\POLYMYXIN B\PRAMOXINE HYDROCHLORIDE
     Indication: WOUND
     Dosage: FINGERTIPFUL, ONE TIME
     Route: 061
     Dates: start: 20170527, end: 20170527

REACTIONS (1)
  - Cellulitis [Not Recovered/Not Resolved]

NARRATIVE: CASE EVENT DATE: 20170527
